FAERS Safety Report 5056188-5 (Version None)
Quarter: 2006Q3

REPORT INFORMATION
  Report Type: 
  Country: None (occurrence: None)
  Receive Date: 20060714
  Receipt Date: 20060626
  Transmission Date: 20061208
  Serious: Yes (Hospitalization)
  Sender: FDA-Public Use
  Company Number: US200601000799

PATIENT
  Age: 71 Year
  Sex: Female
  Weight: 72.6 kg

DRUGS (8)
  1. FORTEO [Suspect]
     Indication: OSTEOPOROSIS
     Dosage: 20 UG, DAILY (1/D)
     Dates: start: 20050913
  2. FORTEO [Suspect]
  3. FORTEO PEN (FORTEO PEN) [Concomitant]
  4. SYNTHROID [Concomitant]
  5. VITAMINS NOS (VITAMINS NOS) [Concomitant]
  6. CALCIUM (CALCIUM) [Concomitant]
  7. MAXZIDE [Concomitant]
  8. SUDAFED 12 HOUR [Concomitant]

REACTIONS (9)
  - ALANINE AMINOTRANSFERASE INCREASED [None]
  - ASPARTATE AMINOTRANSFERASE INCREASED [None]
  - BLOOD ALKALINE PHOSPHATASE INCREASED [None]
  - CHOLECYSTITIS ACUTE [None]
  - CHOLELITHIASIS [None]
  - FLUID RETENTION [None]
  - INCREASED APPETITE [None]
  - MALAISE [None]
  - WEIGHT INCREASED [None]
